FAERS Safety Report 15173057 (Version 4)
Quarter: 2018Q4

REPORT INFORMATION
  Report Type: Report from Study
  Country: FR (occurrence: FR)
  Receive Date: 20180720
  Receipt Date: 20181221
  Transmission Date: 20190204
  Serious: Yes (Other)
  Sender: FDA-Public Use
  Company Number: FR-PFIZER INC-2018248367

PATIENT
  Age: 11 Year
  Sex: Female
  Weight: 31 kg

DRUGS (3)
  1. CRIZOTINIB [Suspect]
     Active Substance: CRIZOTINIB
     Dosage: 200 MG, SINGLE
     Dates: start: 20180615, end: 20180615
  2. CRIZOTINIB [Suspect]
     Active Substance: CRIZOTINIB
     Indication: ANAPLASTIC LARGE-CELL LYMPHOMA
     Dosage: UNK UNK, DAILY
     Route: 048
     Dates: start: 20170609
  3. CRIZOTINIB [Suspect]
     Active Substance: CRIZOTINIB
     Dosage: 400 MG, 2X/DAY
     Route: 048
     Dates: start: 20180606, end: 20180614

REACTIONS (1)
  - Neutropenia [Recovered/Resolved]

NARRATIVE: CASE EVENT DATE: 20180612
